FAERS Safety Report 5280050-6 (Version None)
Quarter: 2007Q1

REPORT INFORMATION
  Report Type: 
  Country: None (occurrence: None)
  Receive Date: 20061229
  Receipt Date: 20060908
  Transmission Date: 20070707
  Serious: Yes (Other)
  Sender: FDA-Public Use
  Company Number: 2006UW13961

PATIENT
  Sex: Male

DRUGS (2)
  1. CRESTOR [Suspect]
     Indication: CAROTID ARTERY DISEASE
     Dates: end: 20060801
  2. PLAVIX [Suspect]

REACTIONS (4)
  - DIZZINESS [None]
  - HEART RATE DECREASED [None]
  - MEDICATION ERROR [None]
  - MUSCLE SPASMS [None]
